FAERS Safety Report 16870221 (Version 1)
Quarter: 2019Q3

REPORT INFORMATION
  Report Type: Spontaneous
  Country: FR (occurrence: FR)
  Receive Date: 20190930
  Receipt Date: 20190930
  Transmission Date: 20191005
  Serious: Yes (Other)
  Sender: FDA-Public Use
  Company Number: PHHY2019FR226504

PATIENT
  Age: 58 Year
  Sex: Female

DRUGS (4)
  1. BEVACIZUMAB. [Suspect]
     Active Substance: BEVACIZUMAB
     Indication: METASTASES TO BONE
  2. BEVACIZUMAB. [Suspect]
     Active Substance: BEVACIZUMAB
     Indication: BREAST CANCER
     Route: 065
  3. ZOLEDRONATE [Suspect]
     Active Substance: ZOLEDRONIC ACID
     Indication: BREAST CANCER
     Route: 065
  4. ZOLEDRONATE [Suspect]
     Active Substance: ZOLEDRONIC ACID
     Indication: METASTASES TO BONE

REACTIONS (1)
  - Osteonecrosis of jaw [Recovering/Resolving]
